FAERS Safety Report 23012182 (Version 2)
Quarter: 2023Q4

REPORT INFORMATION
  Report Type: Report from Study
  Country: US (occurrence: US)
  Receive Date: 20230930
  Receipt Date: 20231107
  Transmission Date: 20240109
  Serious: No
  Sender: FDA-Public Use
  Company Number: US-002147023-NVSC2023US211223

PATIENT
  Age: 53 Year
  Sex: Female
  Weight: 55.34 kg

DRUGS (1)
  1. ENTRESTO [Suspect]
     Active Substance: SACUBITRIL\VALSARTAN
     Indication: Product used for unknown indication
     Dosage: 1 DOSAGE FORM, BID
     Route: 048
     Dates: start: 20230825

REACTIONS (2)
  - Alopecia [Unknown]
  - Product dose omission issue [Unknown]

NARRATIVE: CASE EVENT DATE: 20230914
